FAERS Safety Report 8165297-3 (Version None)
Quarter: 2012Q1

REPORT INFORMATION
  Report Type: 
  Country: None (occurrence: None)
  Receive Date: 20120223
  Receipt Date: 20120223
  Transmission Date: 20120608
  Serious: Yes (Hospitalization)
  Sender: FDA-Public Use
  Company Number: None

PATIENT
  Age: 58 Year
  Sex: Male
  Weight: 114 kg

DRUGS (2)
  1. LISINOPRIL [Concomitant]
  2. ACTIVASE [Suspect]
     Indication: CEREBROVASCULAR ACCIDENT
     Dosage: 90MG IV X 1 DOSE
     Route: 042
     Dates: start: 20110607

REACTIONS (5)
  - DYSPNOEA [None]
  - DYSPHAGIA [None]
  - SWOLLEN TONGUE [None]
  - TONGUE BLISTERING [None]
  - HEMIPARESIS [None]
